FAERS Safety Report 24270343 (Version 1)
Quarter: 2024Q3

REPORT INFORMATION
  Report Type: Spontaneous
  Country: FR (occurrence: FR)
  Receive Date: 20240830
  Receipt Date: 20240830
  Transmission Date: 20241017
  Serious: Yes (Other)
  Sender: TEVA
  Company Number: None

PATIENT
  Age: 31 Year
  Sex: Female

DRUGS (57)
  1. CLOZAPINE [Suspect]
     Active Substance: CLOZAPINE
     Indication: Schizophrenia
     Dosage: 150 MG/D
     Route: 048
     Dates: start: 20240112, end: 20240119
  2. CLOZAPINE [Suspect]
     Active Substance: CLOZAPINE
     Indication: Schizophrenia
     Dosage: 50 MG/D
     Route: 048
     Dates: start: 20240104, end: 20240108
  3. CLOZAPINE [Suspect]
     Active Substance: CLOZAPINE
     Indication: Schizophrenia
     Dosage: 100 MG/D
     Route: 048
     Dates: start: 20240108, end: 20240112
  4. CLOZAPINE [Suspect]
     Active Substance: CLOZAPINE
     Indication: Schizophrenia
     Dosage: 400 MG/D
     Route: 048
     Dates: start: 20240514
  5. CLOZAPINE [Suspect]
     Active Substance: CLOZAPINE
     Indication: Schizophrenia
     Dosage: 200 MG/D
     Route: 048
     Dates: start: 20240119, end: 20240426
  6. NALOXEGOL OXALATE [Suspect]
     Active Substance: NALOXEGOL OXALATE
     Indication: Constipation
     Dosage: 25 MG/D
     Route: 048
     Dates: start: 20240605, end: 20240614
  7. NALOXEGOL OXALATE [Suspect]
     Active Substance: NALOXEGOL OXALATE
     Indication: Constipation
     Dosage: 25 MG/D
     Route: 048
     Dates: start: 20240705, end: 20240718
  8. NALOXEGOL OXALATE [Suspect]
     Active Substance: NALOXEGOL OXALATE
     Indication: Constipation
     Dosage: 12.5 MG/D
     Route: 048
     Dates: start: 20240405, end: 20240605
  9. LIDOCAINE [Suspect]
     Active Substance: LIDOCAINE
     Indication: Pain
     Dosage: 1 DAY OUT OF 3
     Route: 003
     Dates: start: 20240621, end: 20240718
  10. LIDOCAINE [Suspect]
     Active Substance: LIDOCAINE
     Indication: Pain
     Dosage: 1 DAY OUT OF 3, 5%
     Route: 003
     Dates: start: 20240221, end: 20240514
  11. OXYCODONE HYDROCHLORIDE [Concomitant]
     Active Substance: OXYCODONE HYDROCHLORIDE
     Indication: Pain
     Dosage: TIME INTERVAL: AS NECESSARY: 5 MG IF NECESSARY
     Route: 048
     Dates: start: 20240115, end: 20240229
  12. OXYCODONE HYDROCHLORIDE [Concomitant]
     Active Substance: OXYCODONE HYDROCHLORIDE
     Indication: Pain
     Dosage: TIME INTERVAL: AS NECESSARY: 5 MG IF NECESSARY
     Route: 048
     Dates: start: 20240313, end: 20240514
  13. FOLIC ACID [Concomitant]
     Active Substance: FOLIC ACID
     Indication: Folate deficiency
     Dosage: 5 MG/D
     Route: 048
     Dates: start: 20240119, end: 20240530
  14. SKENAN [Suspect]
     Active Substance: MORPHINE SULFATE
     Indication: Pain
     Dosage: 15 MG/D, SKENAN L.P , SUSTAINED RELEASE MICROGRANULES IN CAPSULE
     Route: 048
     Dates: start: 20240610, end: 20240610
  15. SKENAN [Suspect]
     Active Substance: MORPHINE SULFATE
     Indication: Pain
     Dosage: 20 MG/D, SKENAN L.P , SUSTAINED RELEASE MICROGRANULES IN CAPSULE
     Route: 048
     Dates: start: 20240524, end: 20240610
  16. SKENAN [Suspect]
     Active Substance: MORPHINE SULFATE
     Indication: Pain
     Dosage: 10 MG/D, SKENAN L.P , SUSTAINED RELEASE MICROGRANULES IN CAPSULE
     Route: 048
     Dates: start: 20240610, end: 20240613
  17. SKENAN [Suspect]
     Active Substance: MORPHINE SULFATE
     Indication: Pain
     Dosage: 40 MG/D, SKENAN L.P , SUSTAINED RELEASE MICROGRANULES IN CAPSULE
     Route: 048
     Dates: start: 20240514, end: 20240524
  18. IMOVANE [Suspect]
     Active Substance: ZOPICLONE
     Indication: Insomnia
     Dosage: TIME INTERVAL: AS NECESSARY: 1/2 TSP IF NECESSARY
     Route: 048
     Dates: start: 20240614
  19. IMOVANE [Suspect]
     Active Substance: ZOPICLONE
     Indication: Insomnia
     Dosage: 1 CP/D
     Route: 048
     Dates: start: 20240511, end: 20240511
  20. SCOPOLAMINE [Suspect]
     Active Substance: SCOPOLAMINE
     Indication: Salivary hypersecretion
     Dosage: 1 PATCH / 72H, TTS 1 MG/72 HOURS
     Route: 062
     Dates: start: 20240629, end: 20240718
  21. CYAMEMAZINE [Suspect]
     Active Substance: CYAMEMAZINE
     Indication: Psychotic disorder
     Dosage: 200 MG/D
     Route: 048
     Dates: start: 20240511, end: 20240708
  22. CYAMEMAZINE [Suspect]
     Active Substance: CYAMEMAZINE
     Indication: Psychotic disorder
     Dosage: TIME INTERVAL: AS NECESSARY: 30 MG IF NEEDED
     Route: 048
     Dates: start: 20240322, end: 20240511
  23. CYAMEMAZINE [Suspect]
     Active Substance: CYAMEMAZINE
     Indication: Psychotic disorder
     Dosage: TIME INTERVAL: AS NECESSARY: 50 MG IF NEEDED
     Route: 048
     Dates: start: 20240112, end: 20240322
  24. CYAMEMAZINE [Suspect]
     Active Substance: CYAMEMAZINE
     Indication: Psychotic disorder
     Dosage: 100 MG/D
     Route: 048
     Dates: start: 20240708, end: 20240711
  25. CYAMEMAZINE [Suspect]
     Active Substance: CYAMEMAZINE
     Indication: Psychotic disorder
     Dosage: 250 MG/D
     Route: 048
     Dates: start: 20240104, end: 20240112
  26. FLUPENTIXOL [Suspect]
     Active Substance: FLUPENTIXOL
     Indication: Psychotic disorder
     Dosage: 120 MG/D, DROPS
     Route: 048
     Dates: start: 20240704, end: 20240704
  27. FLUPENTIXOL [Suspect]
     Active Substance: FLUPENTIXOL
     Indication: Psychotic disorder
     Dosage: 100 MG/D, DROPS
     Route: 048
     Dates: start: 20240624, end: 20240704
  28. FLUPENTIXOL [Suspect]
     Active Substance: FLUPENTIXOL
     Indication: Psychotic disorder
     Dosage: 100 MG/D, DROPS
     Route: 048
     Dates: start: 20240704, end: 20240718
  29. FLUPENTIXOL [Suspect]
     Active Substance: FLUPENTIXOL
     Indication: Psychotic disorder
     Dosage: 60 MG/D, DROPS
     Route: 048
     Dates: start: 20240529, end: 20240611
  30. FLUPENTIXOL [Suspect]
     Active Substance: FLUPENTIXOL
     Indication: Psychotic disorder
     Dosage: 30 MG/D, DROPS
     Route: 048
     Dates: start: 20240515, end: 20240529
  31. FLUPENTIXOL [Suspect]
     Active Substance: FLUPENTIXOL
     Indication: Psychotic disorder
     Dosage: 80 MG/D, DROPS
     Route: 048
     Dates: start: 20240611, end: 20240624
  32. FERROUS SULFATE [Concomitant]
     Active Substance: FERROUS SULFATE
     Indication: Iron deficiency
     Dosage: 80 MG/D
     Route: 048
     Dates: start: 20240119, end: 20240530
  33. MORPHINE SULFATE [Suspect]
     Active Substance: MORPHINE SULFATE
     Indication: Pain
     Dosage: TIME INTERVAL: AS NECESSARY: 5 MG IF NECESSARY
     Route: 048
     Dates: start: 20240112, end: 20240115
  34. MORPHINE SULFATE [Suspect]
     Active Substance: MORPHINE SULFATE
     Indication: Pain
     Dosage: TIME INTERVAL: AS NECESSARY: 5 MG IF NEEDED
     Route: 048
     Dates: start: 20240514
  35. MOVICOL [Suspect]
     Active Substance: POLYETHYLENE GLYCOL 3350\POTASSIUM CHLORIDE\SODIUM BICARBONATE\SODIUM CHLORIDE
     Indication: Constipation
     Dosage: 4 SACHETS/D
     Route: 048
     Dates: start: 20240626, end: 20240627
  36. MOVICOL [Suspect]
     Active Substance: POLYETHYLENE GLYCOL 3350\POTASSIUM CHLORIDE\SODIUM BICARBONATE\SODIUM CHLORIDE
     Indication: Constipation
     Dosage: 1 SACHETS/D
     Route: 048
     Dates: start: 20240115, end: 20240119
  37. MOVICOL [Suspect]
     Active Substance: POLYETHYLENE GLYCOL 3350\POTASSIUM CHLORIDE\SODIUM BICARBONATE\SODIUM CHLORIDE
     Indication: Constipation
     Dosage: 2 SACHETS/D
     Route: 048
     Dates: start: 20240604, end: 20240626
  38. MOVICOL [Suspect]
     Active Substance: POLYETHYLENE GLYCOL 3350\POTASSIUM CHLORIDE\SODIUM BICARBONATE\SODIUM CHLORIDE
     Indication: Constipation
     Dosage: 2 SACHETS/D
     Route: 048
     Dates: start: 20240130, end: 20240226
  39. MOVICOL [Suspect]
     Active Substance: POLYETHYLENE GLYCOL 3350\POTASSIUM CHLORIDE\SODIUM BICARBONATE\SODIUM CHLORIDE
     Indication: Constipation
     Dosage: 2 SACHETS/D
     Route: 048
     Dates: start: 20240119, end: 20240122
  40. GABAPENTIN [Suspect]
     Active Substance: GABAPENTIN
     Indication: Neuralgia
     Dosage: 600 MG/D
     Route: 048
     Dates: start: 20240216, end: 20240221
  41. GABAPENTIN [Suspect]
     Active Substance: GABAPENTIN
     Indication: Neuralgia
     Dosage: 2400 MG/D
     Route: 048
     Dates: start: 20240619
  42. GABAPENTIN [Suspect]
     Active Substance: GABAPENTIN
     Indication: Neuralgia
     Dosage: 1200 MG/D
     Route: 048
     Dates: start: 20240301, end: 20240405
  43. GABAPENTIN [Suspect]
     Active Substance: GABAPENTIN
     Indication: Neuralgia
     Dosage: 1800 MG/D
     Route: 048
     Dates: start: 20240425, end: 20240619
  44. GABAPENTIN [Suspect]
     Active Substance: GABAPENTIN
     Indication: Neuralgia
     Dosage: 300 MG/D
     Route: 048
     Dates: start: 20240213, end: 20240216
  45. GABAPENTIN [Suspect]
     Active Substance: GABAPENTIN
     Indication: Neuralgia
     Dosage: 900 MG/D
     Route: 048
     Dates: start: 20240221, end: 20240301
  46. GABAPENTIN [Suspect]
     Active Substance: GABAPENTIN
     Indication: Neuralgia
     Dosage: 1500 MG/D
     Route: 048
     Dates: start: 20240405, end: 20240425
  47. ABILIFY [Concomitant]
     Active Substance: ARIPIPRAZOLE
     Indication: Pain
     Dosage: 400 MG/MONTH
     Route: 030
     Dates: start: 20240126, end: 20240515
  48. ABILIFY [Concomitant]
     Active Substance: ARIPIPRAZOLE
     Indication: Pain
     Dosage: 5 MG/D
     Route: 048
     Dates: start: 20240119, end: 20240119
  49. DUPHALAC [Suspect]
     Active Substance: LACTULOSE
     Indication: Constipation
     Dosage: 2 SACHETS /D,  FOR RECTAL SOLUTION IN SACHET
     Route: 048
     Dates: start: 20240627
  50. DUPHALAC [Suspect]
     Active Substance: LACTULOSE
     Indication: Constipation
     Dosage: 3 SACHETS /D, FOR RECTAL SOLUTION IN SACHET
     Route: 048
     Dates: start: 20240322, end: 20240401
  51. DUPHALAC [Suspect]
     Active Substance: LACTULOSE
     Indication: Constipation
     Dosage: 3 SACHETS /D,  FOR RECTAL SOLUTION IN SACHET
     Route: 048
     Dates: start: 20240405, end: 20240604
  52. DUPHALAC [Suspect]
     Active Substance: LACTULOSE
     Indication: Constipation
     Dosage: TIME INTERVAL: AS NECESSARY: 1 SACHET IF NEEDED, 10 G,  FOR RECTAL SOLUTION IN SACHET
     Route: 048
     Dates: start: 20240404, end: 20240405
  53. ACUPAN [Concomitant]
     Active Substance: NEFOPAM HYDROCHLORIDE
     Indication: Pain
     Dosage: 80 MG/D
     Route: 048
     Dates: start: 20240221, end: 20240311
  54. ACUPAN [Concomitant]
     Active Substance: NEFOPAM HYDROCHLORIDE
     Indication: Pain
     Dosage: TIME INTERVAL: AS NECESSARY: 20 MG IF NEEDED
     Route: 048
     Dates: start: 20240514, end: 20240530
  55. OXYCONTIN [Concomitant]
     Active Substance: OXYCODONE HYDROCHLORIDE
     Indication: Pain
     Dosage: 20 MG/D, OXYCONTIN LP , FILM-COATED PROLONGED RELEASE TABLET
     Route: 048
     Dates: start: 20240123, end: 20240514
  56. VALIUM [Concomitant]
     Active Substance: DIAZEPAM
     Indication: Product used for unknown indication
     Dosage: TIME INTERVAL: AS NECESSARY: 10 MG IF NEEDED
     Route: 048
     Dates: start: 20240104, end: 20240115
  57. VALIUM [Concomitant]
     Active Substance: DIAZEPAM
     Indication: Product used for unknown indication
     Dosage: 10 MG/D
     Route: 048
     Dates: start: 20240123, end: 20240412

REACTIONS (1)
  - Hyperprolactinaemia [Recovering/Resolving]

NARRATIVE: CASE EVENT DATE: 20240701
